FAERS Safety Report 7773790-8 (Version None)
Quarter: 2011Q3

REPORT INFORMATION
  Report Type: 
  Country: None (occurrence: None)
  Receive Date: 20110920
  Receipt Date: 20110914
  Transmission Date: 20111222
  Serious: Yes (Other)
  Sender: FDA-Public Use
  Company Number: 2011SP043454

PATIENT
  Age: 14 Year
  Sex: Female

DRUGS (1)
  1. IMPLANON [Suspect]
     Indication: CONTRACEPTION
     Dates: start: 20100701, end: 20110801

REACTIONS (2)
  - PAPILLOEDEMA [None]
  - INTRACRANIAL PRESSURE INCREASED [None]
